FAERS Safety Report 8640748 (Version 2)
Quarter: 2014Q1

REPORT INFORMATION
  Report Type: Spontaneous
  Country: US (occurrence: None)
  Receive Date: 20120323
  Receipt Date: 20130305
  Transmission Date: 20141002
  Serious: Yes (Other)
  Sender: FDA-Public Use
  Company Number: 163-21880-11101612

PATIENT
  Age: 79 Year
  Sex: Male

DRUGS (8)
  1. REVLIMID [Suspect]
     Indication: CHRONIC LYMPHOCYTIC LEUKAEMIA
     Dosage: 5 MG, 21/28, PO
     Route: 048
     Dates: start: 20110509, end: 20110524
  2. LEXAPRO [Concomitant]
  3. BACTRIM [Concomitant]
  4. ACYCLOVIR [Concomitant]
  5. GABAPENTIN (GABAPENTIN) [Concomitant]
  6. ALLOPURINOL [Concomitant]
  7. FLONASE [Concomitant]
  8. ADVAIR DISKUS [Concomitant]

REACTIONS (3)
  - Tumour flare [None]
  - Fatigue [None]
  - Condition aggravated [None]
